FAERS Safety Report 4474734-7 (Version None)
Quarter: 2004Q4

REPORT INFORMATION
  Report Type: 
  Country: None (occurrence: None)
  Receive Date: 20041012
  Receipt Date: 20040927
  Transmission Date: 20050328
  Serious: Yes (Other)
  Sender: FDA-Public Use
  Company Number: 2004229485BE

PATIENT
  Age: 71 Year
  Sex: Male
  Weight: 61 kg

DRUGS (5)
  1. ESTRACYT (ESTRAMUSTINE PHOSPHATE) POWDER, STERILE [Suspect]
     Indication: PROSTATE CANCER
     Dosage: 300 MG, QD, INTRAMUSCULAR
     Route: 030
     Dates: start: 20040816, end: 20040817
  2. EMCONCOR (BISOPROLOL) [Concomitant]
  3. MOXONIDINE (MOXONIDINE) [Concomitant]
  4. CARDIOASPIRIN [Concomitant]
  5. CALCIUM [Concomitant]

REACTIONS (9)
  - DEPRESSION [None]
  - DYSPHAGIA [None]
  - GAIT DISTURBANCE [None]
  - INFLAMMATION [None]
  - INJECTION SITE PAIN [None]
  - INJECTION SITE SCLEROSIS [None]
  - MEDICATION ERROR [None]
  - NERVOUSNESS [None]
  - PAIN [None]
